FAERS Safety Report 9590667 (Version 1)
Quarter: 2013Q4

REPORT INFORMATION
  Report Type: Spontaneous
  Country: US (occurrence: US)
  Receive Date: 20131003
  Receipt Date: 20131003
  Transmission Date: 20140711
  Serious: No
  Sender: FDA-Public Use
  Company Number: US-AMGEN-USASP2012075624

PATIENT
  Age: 46 Year
  Sex: Female
  Weight: 97.05 kg

DRUGS (6)
  1. ENBREL [Suspect]
     Indication: RHEUMATOID ARTHRITIS
     Dosage: 50 MG, QWK
     Route: 058
  2. CYMBALTA [Concomitant]
     Dosage: 30 MG, UNK
  3. AMBIEN [Concomitant]
     Dosage: 5 MG, UNK
  4. TOPAMAX [Concomitant]
     Dosage: 50 MG, UNK
  5. IBUPROFEN [Concomitant]
     Dosage: 200 MG, UNK
  6. MULTIVITAMINS, PLAIN [Concomitant]
     Dosage: UNK

REACTIONS (2)
  - Eye pain [Recovered/Resolved]
  - Eye swelling [Recovered/Resolved]
